FAERS Safety Report 22006124 (Version 2)
Quarter: 2023Q1

REPORT INFORMATION
  Report Type: Spontaneous
  Country: US (occurrence: US)
  Receive Date: 20230217
  Receipt Date: 20230320
  Transmission Date: 20230418
  Serious: Yes (Other)
  Sender: FDA-Public Use
  Company Number: US-PFIZER INC-202300070621

PATIENT
  Age: 55 Year
  Sex: Female

DRUGS (2)
  1. IBRANCE [Suspect]
     Active Substance: PALBOCICLIB
     Dosage: 125 MG, 21 DAYS THEN 7 DAYS OFF
     Route: 048
     Dates: start: 20230111
  2. ANASTROZOLE [Suspect]
     Active Substance: ANASTROZOLE
     Dosage: UNK

REACTIONS (5)
  - Pneumonia [Unknown]
  - White blood cell count decreased [Not Recovered/Not Resolved]
  - Foot deformity [Recovered/Resolved]
  - Bone pain [Recovered/Resolved]
  - Red blood cell count decreased [Unknown]

NARRATIVE: CASE EVENT DATE: 20230101
